FAERS Safety Report 12189329 (Version 2)
Quarter: 2016Q2

REPORT INFORMATION
  Report Type: Report from Study
  Country: US (occurrence: US)
  Receive Date: 20160317
  Receipt Date: 20160401
  Transmission Date: 20160815
  Serious: Yes (Other)
  Sender: FDA-Public Use
  Company Number: US-BIOGEN-2016BI00203166

PATIENT
  Sex: Female
  Weight: 85.35 kg

DRUGS (22)
  1. TECFIDERA [Suspect]
     Active Substance: DIMETHYL FUMARATE
     Indication: MULTIPLE SCLEROSIS
     Route: 048
  2. PRENATAL PLUS [Concomitant]
     Active Substance: .ALPHA.-TOCOPHEROL ACETATE, DL-\.BETA.-CAROTENE\ASCORBIC ACID\CALCIUM CARBONATE\CHOLECALCIFEROL\CUPRIC OXIDE\CYANOCOBALAMIN\FERROUS FUMARATE\FOLIC ACID\NIACINAMIDE\PYRIDOXINE HYDROCHLORIDE\RIBOFLAVIN\THIAMINE MONONITRATE\VITAMIN A ACETATE\ZINC OXIDE
     Indication: PRODUCT USED FOR UNKNOWN INDICATION
     Dosage: 27 MG IRON- 1 MG, 60 TAB
     Route: 048
  3. ALBUTEROL (PROVENTIL) [Concomitant]
     Indication: WHEEZING
     Dosage: 1-2 PUFFS
     Route: 065
  4. LORATADINE (CLARITIN) [Concomitant]
     Indication: NASAL CONGESTION
     Dosage: 10 TAB
     Route: 048
  5. LACTATED RINGERS [Concomitant]
     Active Substance: CALCIUM CHLORIDE\POTASSIUM CHLORIDE\SODIUM CHLORIDE\SODIUM LACTATE
     Indication: PRODUCT USED FOR UNKNOWN INDICATION
     Route: 042
  6. LORAZEPAM (ATIVAN) [Concomitant]
     Indication: ANXIETY
     Dosage: AS NEEDED FOR 15 DOSES, 15 TAB
     Route: 048
  7. FAMOTITIDE (PEPCID) [Concomitant]
     Indication: DYSPEPSIA
     Dosage: AS NEEDED UP TO 30 DOSES
     Route: 048
  8. NAPROXEN (NAPROSYN) [Concomitant]
     Indication: PRODUCT USED FOR UNKNOWN INDICATION
     Route: 048
  9. METHOCARBAMOL (ROBAXIN) [Concomitant]
     Indication: PRODUCT USED FOR UNKNOWN INDICATION
     Dosage: 60 TAB
     Route: 048
  10. RISPERIDONE (RISPEDAL) [Concomitant]
     Indication: PRODUCT USED FOR UNKNOWN INDICATION
     Dosage: 2 TABS NIGHTLY, 60 TAB
     Route: 048
  11. MEDROXYPROGESTERONE ACETATE (DEPO-PROVERA) [Concomitant]
     Indication: PRODUCT USED FOR UNKNOWN INDICATION
     Route: 030
  12. PREDNISONE (DELTASONE) [Concomitant]
     Indication: PRODUCT USED FOR UNKNOWN INDICATION
     Route: 048
  13. MAGNESIUM OXIDE (MAG-OX) [Concomitant]
     Indication: PRODUCT USED FOR UNKNOWN INDICATION
     Dosage: 60 TAB
     Route: 048
  14. ERGOCALCIFEROL (DRISDOL) [Concomitant]
     Indication: PRODUCT USED FOR UNKNOWN INDICATION
     Dosage: 50000 UNIT, 12 CAP
     Route: 048
  15. FLONASE [Concomitant]
     Active Substance: FLUTICASONE PROPIONATE
     Indication: PRODUCT USED FOR UNKNOWN INDICATION
     Dosage: 17 G
     Route: 045
  16. TYSABRI [Suspect]
     Active Substance: NATALIZUMAB
     Indication: MULTIPLE SCLEROSIS
     Dosage: INFUSED OVER 1 HOUR
     Route: 042
     Dates: start: 20150309
  17. TOLTERODINE (DETROL) [Concomitant]
     Indication: HYPERTONIC BLADDER
     Dosage: 1 BY MOITH NIGHTLY, 30 TAB
     Route: 048
  18. IBUPROFEN (ADVIL, MOTRIN) [Concomitant]
     Indication: PAIN
     Dosage: AS NEEDED, UP TO 24 DOSES
     Route: 048
  19. CALCIUM CARB [Concomitant]
     Indication: PRODUCT USED FOR UNKNOWN INDICATION
     Dosage: 27 MG IRON- 1 MG, 60 TAB
     Route: 048
  20. GABAPENTIN (NEURONTIN) [Concomitant]
     Indication: PRODUCT USED FOR UNKNOWN INDICATION
     Dosage: 4 CAPS (400 MG) FOR 1 WEEK, THEN 5 CAPS (500 MG) FOR 1 WEEK, THEN 6 CAPS (600 MG) TWICE DAILY THEREA
     Route: 048
  21. LEVETIRACETAM (KEPPA) [Concomitant]
     Indication: PRODUCT USED FOR UNKNOWN INDICATION
     Route: 048
  22. METOPROLOL (LOPRESSOR) [Concomitant]
     Indication: MIGRAINE PROPHYLAXIS
     Dosage: 60 TAB
     Route: 048

REACTIONS (4)
  - Pulmonary embolism [Unknown]
  - Epilepsy [Unknown]
  - Hepatic cirrhosis [Unknown]
  - Adverse reaction [Unknown]
